FAERS Safety Report 4817174-0 (Version None)
Quarter: 2005Q4

REPORT INFORMATION
  Report Type: 
  Country: None (occurrence: None)
  Receive Date: 20051101
  Receipt Date: 20051014
  Transmission Date: 20060501
  Serious: Yes (Hospitalization)
  Sender: FDA-Public Use
  Company Number: 2005AP05406

PATIENT
  Age: 57 Year
  Sex: Male

DRUGS (8)
  1. PLENDIL [Suspect]
     Route: 048
     Dates: start: 19970101
  2. AVAPRO HCT [Concomitant]
     Dosage: 300/12.5
  3. PLAVIX [Concomitant]
  4. LIPITOR [Concomitant]
  5. FISH OIL [Concomitant]
  6. GINKO [Concomitant]
  7. COENZYME Q10 [Concomitant]
  8. VITAMIN E [Concomitant]

REACTIONS (3)
  - ALCOHOL USE [None]
  - BLOOD PRESSURE INCREASED [None]
  - MALAISE [None]
